FAERS Safety Report 20439593 (Version 1)
Quarter: 2022Q1

REPORT INFORMATION
  Report Type: Spontaneous
  Country: US (occurrence: None)
  Receive Date: 20220205
  Receipt Date: 20220205
  Transmission Date: 20220424
  Serious: Yes (Hospitalization)
  Sender: FDA-Public Use
  Company Number: None

PATIENT
  Age: 31 Year
  Sex: Female
  Weight: 107.5 kg

DRUGS (5)
  1. METHOTREXATE [Suspect]
     Active Substance: METHOTREXATE
     Dates: end: 20220103
  2. ONCASPAR [Suspect]
     Active Substance: PEGASPARGASE
     Dates: end: 20220101
  3. RITUXIMAB [Suspect]
     Active Substance: RITUXIMAB
     Dates: end: 20211230
  4. VINCRISTINE SULFATE [Suspect]
     Active Substance: VINCRISTINE SULFATE
     Dates: end: 20211230
  5. VINCRISTINE SULFATE [Suspect]
     Active Substance: VINCRISTINE SULFATE

REACTIONS (22)
  - Mucosal inflammation [None]
  - Retching [None]
  - Haemoptysis [None]
  - Nausea [None]
  - Pyrexia [None]
  - Gastrooesophageal reflux disease [None]
  - Constipation [None]
  - Dehydration [None]
  - Swelling face [None]
  - Oropharyngeal pain [None]
  - Pain [None]
  - Tachycardia [None]
  - Hyperbilirubinaemia [None]
  - Hyperglycaemia [None]
  - Pancreatitis [None]
  - COVID-19 [None]
  - Febrile neutropenia [None]
  - Odynophagia [None]
  - Colitis [None]
  - Hypernatraemia [None]
  - Therapy change [None]
  - Therapy interrupted [None]

NARRATIVE: CASE EVENT DATE: 20220109
